FAERS Safety Report 15843401 (Version 2)
Quarter: 2019Q1

REPORT INFORMATION
  Report Type: Spontaneous
  Country: FR (occurrence: FR)
  Receive Date: 20190118
  Receipt Date: 20190221
  Transmission Date: 20190417
  Serious: Yes (Hospitalization, Other)
  Sender: FDA-Public Use
  Company Number: FR-ASTRAZENECA-2019SE07765

PATIENT
  Age: 24861 Day
  Sex: Male

DRUGS (16)
  1. DOCETAXEL. [Suspect]
     Active Substance: DOCETAXEL
     Dosage: 160 MG/8 ML WEEKLY
     Route: 065
  2. CACIT [CALCIUM CARBONATE;CITRIC ACID] [Suspect]
     Active Substance: CALCIUM CARBONATE\CITRIC ACID MONOHYDRATE
     Route: 048
     Dates: end: 20181218
  3. KAYEXALATE [Concomitant]
     Active Substance: SODIUM POLYSTYRENE SULFONATE
  4. SPECIAFOLDINE [Concomitant]
     Active Substance: FOLIC ACID
  5. TINZAPARIN [Concomitant]
     Active Substance: TINZAPARIN
  6. PERINDOPRIL [Suspect]
     Active Substance: PERINDOPRIL
     Indication: HYPERTENSION
     Route: 048
     Dates: end: 20181218
  7. MIANSERIN [Suspect]
     Active Substance: MIANSERIN
     Route: 048
     Dates: end: 20181218
  8. ONDANSETRON [Suspect]
     Active Substance: ONDANSETRON
     Indication: PROPHYLAXIS
     Route: 048
     Dates: start: 20181022, end: 20181223
  9. PARACETAMOL [Concomitant]
     Active Substance: ACETAMINOPHEN
  10. IMFINZI [Suspect]
     Active Substance: DURVALUMAB
     Indication: SQUAMOUS CELL CARCINOMA OF LUNG
     Dosage: 750 MG
     Route: 042
     Dates: start: 20181217
  11. PANTOPRAZOLE [Concomitant]
     Active Substance: PANTOPRAZOLE
     Indication: UPPER GASTROINTESTINAL HAEMORRHAGE
  12. PARACETAMOL [Concomitant]
     Active Substance: ACETAMINOPHEN
  13. KAYEXALATE [Concomitant]
     Active Substance: SODIUM POLYSTYRENE SULFONATE
  14. TINZAPARIN [Concomitant]
     Active Substance: TINZAPARIN
  15. ALLOPURINOL. [Suspect]
     Active Substance: ALLOPURINOL
     Indication: GOUT
     Route: 048
  16. LYRICA [Concomitant]
     Active Substance: PREGABALIN

REACTIONS (5)
  - Respiratory failure [Recovered/Resolved]
  - Pneumonitis [Unknown]
  - Interstitial lung disease [Recovering/Resolving]
  - Cough [Recovering/Resolving]
  - Radiation pneumonitis [Unknown]

NARRATIVE: CASE EVENT DATE: 20181218
